FAERS Safety Report 6240307-9 (Version None)
Quarter: 2009Q2

REPORT INFORMATION
  Report Type: 
  Country: None (occurrence: None)
  Receive Date: 20090623
  Receipt Date: 20080912
  Transmission Date: 20091009
  Serious: No
  Sender: FDA-Public Use
  Company Number: US-ASTRAZENECA-2008UW12991

PATIENT
  Age: 79 Year
  Sex: Female
  Weight: 56.2 kg

DRUGS (3)
  1. PULMICORT FLEXHALER [Suspect]
     Indication: ASTHMA
     Dosage: ONE INHALATION BID
     Route: 055
  2. PULMICORT FLEXHALER [Suspect]
     Dosage: TWO INHALATIONS BID
     Route: 055
  3. FOSAMAX [Concomitant]

REACTIONS (1)
  - DYSPNOEA [None]
